FAERS Safety Report 12121012 (Version 6)
Quarter: 2017Q1

REPORT INFORMATION
  Report Type: Report from Study
  Country: CA (occurrence: CA)
  Receive Date: 20160226
  Receipt Date: 20170216
  Transmission Date: 20170428
  Serious: Yes (Hospitalization, Other)
  Sender: FDA-Public Use
  Company Number: CA-JNJFOC-20160224743

PATIENT
  Age: 71 Year
  Sex: Male

DRUGS (2)
  1. IMBRUVICA [Suspect]
     Active Substance: IBRUTINIB
     Indication: CHRONIC LYMPHOCYTIC LEUKAEMIA
     Route: 048
     Dates: start: 20150710
  2. IMBRUVICA [Suspect]
     Active Substance: IBRUTINIB
     Indication: CHRONIC LYMPHOCYTIC LEUKAEMIA
     Route: 048
     Dates: start: 201701, end: 201701

REACTIONS (11)
  - Loss of consciousness [Recovered/Resolved]
  - Skin disorder [Recovering/Resolving]
  - Heart rate irregular [Unknown]
  - Aspiration pleural cavity [Unknown]
  - Urinary tract infection [Not Recovered/Not Resolved]
  - Dizziness [Recovered/Resolved]
  - Gastric haemorrhage [Recovered/Resolved]
  - Fatigue [Not Recovered/Not Resolved]
  - Myocardial infarction [Unknown]
  - Laboratory test abnormal [Recovered/Resolved]
  - Hyperhidrosis [Recovered/Resolved]

NARRATIVE: CASE EVENT DATE: 20160204
